FAERS Safety Report 19350692 (Version 1)
Quarter: 2021Q2

REPORT INFORMATION
  Report Type: Spontaneous
  Country: IT (occurrence: IT)
  Receive Date: 20210531
  Receipt Date: 20210531
  Transmission Date: 20210717
  Serious: Yes (Other)
  Sender: FDA-Public Use
  Company Number: IT-REGENERON PHARMACEUTICALS, INC.-2021-52716

PATIENT

DRUGS (1)
  1. EYLEA [Suspect]
     Active Substance: AFLIBERCEPT
     Indication: PRODUCT USED FOR UNKNOWN INDICATION
     Dosage: 0.5 ?G
     Dates: start: 20190301, end: 20201002

REACTIONS (2)
  - Drug ineffective [Unknown]
  - Macular oedema [Unknown]

NARRATIVE: CASE EVENT DATE: 20201219
